FAERS Safety Report 20303515 (Version 1)
Quarter: 2022Q1

REPORT INFORMATION
  Report Type: Spontaneous
  Country: CN (occurrence: CN)
  Receive Date: 20220106
  Receipt Date: 20220106
  Transmission Date: 20220423
  Serious: Yes (Hospitalization, Other)
  Sender: FDA-Public Use
  Company Number: CN-NOVARTISPH-NVSC2021CN300569

PATIENT
  Age: 41 Year
  Sex: Male
  Weight: 51 kg

DRUGS (2)
  1. TRAMETINIB [Suspect]
     Active Substance: TRAMETINIB
     Indication: Acute myeloid leukaemia
     Dosage: 2 MG, QD
     Route: 048
     Dates: start: 20210304, end: 20210323
  2. CYTARABINE [Concomitant]
     Active Substance: CYTARABINE
     Indication: Leukaemia
     Dosage: 100 MG, QH
     Route: 065
     Dates: start: 20210310

REACTIONS (1)
  - Myelosuppression [Recovering/Resolving]

NARRATIVE: CASE EVENT DATE: 20210308
